FAERS Safety Report 5874430-5 (Version None)
Quarter: 2008Q3

REPORT INFORMATION
  Report Type: 
  Country: None (occurrence: None)
  Receive Date: 20080908
  Receipt Date: 20080829
  Transmission Date: 20090109
  Serious: Yes (Hospitalization)
  Sender: FDA-Public Use
  Company Number: DK-PFIZER INC-2008060153

PATIENT
  Sex: Female
  Weight: 72 kg

DRUGS (12)
  1. SUTENT [Suspect]
     Indication: RENAL CANCER
     Dosage: DAILY DOSE:37.5MG-FREQ:DAILY
     Route: 048
     Dates: start: 20071218, end: 20080611
  2. OXYCONTIN [Concomitant]
     Route: 048
  3. CENTYL [Concomitant]
     Route: 048
  4. NEXIUM [Concomitant]
     Route: 048
  5. ACETYLSALICYLIC ACID SRT [Concomitant]
     Route: 048
  6. DOLOPROCT [Concomitant]
  7. MOVICOL [Concomitant]
     Route: 048
  8. FURIX [Concomitant]
     Route: 048
  9. KALEORID [Concomitant]
     Route: 048
  10. AMLODIPINE [Concomitant]
     Route: 048
  11. CALCIUM [Concomitant]
     Route: 048
  12. VITAMIN D [Concomitant]
     Route: 048

REACTIONS (1)
  - CEREBROVASCULAR ACCIDENT [None]
